FAERS Safety Report 9124709 (Version 1)
Quarter: 2013Q1

REPORT INFORMATION
  Report Type: Spontaneous
  Country: BR (occurrence: BR)
  Receive Date: 20130117
  Receipt Date: 20130117
  Transmission Date: 20140127
  Serious: Yes (Other)
  Sender: FDA-Public Use
  Company Number: PHHY2010BR81678

PATIENT
  Sex: Female

DRUGS (4)
  1. FORASEQ [Suspect]
     Indication: ASTHMA
     Dosage: 1 DF, Q12H (01 INHALATION WITH EACH ACTIVE PRINCIPLE EVERY 12 HOURS)
  2. FORASEQ [Suspect]
     Dosage: 1 DF, Q12H (01 INHALATION WITH EACH ACTIVE PRINCIPLE EVERY 12 HOURS)
  3. ATROVENT [Concomitant]
     Indication: ASTHMA
     Dosage: 40 DRP, TID (40 DROPS THRICE A DAY)
     Dates: start: 2003
  4. BEROTEC [Concomitant]
     Indication: ASTHMA
     Dosage: 8 DRP, TID (08 DROPS THRICE A DAY)
     Dates: start: 2003

REACTIONS (6)
  - Drug dependence [Unknown]
  - Wrong technique in drug usage process [Unknown]
  - Dyspnoea [Recovered/Resolved]
  - Drug ineffective [Unknown]
  - Cough [Recovered/Resolved]
  - Anxiety [Unknown]
